FAERS Safety Report 4392116-3 (Version None)
Quarter: 2004Q3

REPORT INFORMATION
  Report Type: 
  Country: None (occurrence: None)
  Receive Date: 20040702
  Receipt Date: 20040702
  Transmission Date: 20050211
  Serious: No
  Sender: FDA-Public Use
  Company Number: None

PATIENT
  Age: 75 Year
  Sex: Female

DRUGS (9)
  1. BUSULFAN [Suspect]
     Dosage: 2 MG DAILY (2 WEEKS ON /2 WEEKS OFF)
  2. CHOLESTYRAMINE [Concomitant]
  3. DICYCLOMINE HYDROCHLORIDE [Concomitant]
  4. ALBUTEROL [Concomitant]
  5. FUROSEMIDE [Concomitant]
  6. LEVOTHYROXINE SODIUM [Concomitant]
  7. SERTRALINE HYDROCHLORIDE [Concomitant]
  8. GABAPENTIN [Concomitant]
  9. CLONAZEPAM [Concomitant]

REACTIONS (1)
  - PULMONARY HYPERTENSION [None]
